FAERS Safety Report 9312601 (Version 2)
Quarter: 2013Q2

REPORT INFORMATION
  Report Type: Spontaneous
  Country: US (occurrence: US)
  Receive Date: 20130528
  Receipt Date: 20130617
  Transmission Date: 20140414
  Serious: Yes (Hospitalization)
  Sender: FDA-Public Use
  Company Number: US-GLAXOSMITHKLINE-A1024801A

PATIENT
  Age: 39 Year
  Sex: Female

DRUGS (1)
  1. FLOLAN [Suspect]
     Indication: PULMONARY ARTERIAL HYPERTENSION
     Dates: start: 20071231, end: 20130528

REACTIONS (2)
  - Pneumothorax [Unknown]
  - Catheterisation cardiac [Unknown]
